FAERS Safety Report 4357023-0 (Version None)
Quarter: 2004Q2

REPORT INFORMATION
  Report Type: 
  Country: None (occurrence: None)
  Receive Date: 20040512
  Receipt Date: 20040503
  Transmission Date: 20050107
  Serious: Yes (Other)
  Sender: FDA-Public Use
  Company Number: PHBS2004BR05992

PATIENT
  Age: 84 Year
  Sex: Female
  Weight: 80 kg

DRUGS (8)
  1. EXELON [Suspect]
     Indication: DEMENTIA ALZHEIMER'S TYPE
     Dosage: 6 MG/D
     Route: 048
     Dates: start: 20031101
  2. TARGIFOR [Concomitant]
     Dosage: UNK, QD
     Route: 048
  3. MOTILIUM [Concomitant]
     Indication: NAUSEA
     Dosage: UNK, TID
     Route: 048
  4. BEROCCA [Concomitant]
     Dosage: .5 DF, QD
     Route: 048
  5. FLOXACIN [Concomitant]
     Indication: URINARY TRACT INFECTION
     Dosage: UNK, BID
     Route: 048
     Dates: start: 20040501
  6. SERTRALINE [Concomitant]
     Indication: DEPRESSION
     Dosage: UNK, QD
     Route: 048
     Dates: start: 20030101
  7. PLASIL [Concomitant]
     Dosage: UNK, TID
     Route: 048
     Dates: start: 20040501
  8. GARAMYCINA [Concomitant]
     Indication: URINARY TRACT INFECTION
     Dosage: 2 DF, QD
     Route: 030

REACTIONS (4)
  - CONFUSIONAL STATE [None]
  - HYPERGLYCAEMIA [None]
  - POLLAKIURIA [None]
  - URINARY INCONTINENCE [None]
